FAERS Safety Report 8275766-3 (Version None)
Quarter: 2012Q2

REPORT INFORMATION
  Report Type: 
  Country: None (occurrence: None)
  Receive Date: 20120412
  Receipt Date: 20120406
  Transmission Date: 20120825
  Serious: Yes (Other)
  Sender: FDA-Public Use
  Company Number: US-CELGENEUS-163-21880-12040798

PATIENT

DRUGS (3)
  1. REVLIMID [Suspect]
     Dosage: 5MG ESCALATED IN 5MG INCREMENTS TO 25MG/DAY MAX
     Route: 048
  2. CYTARABINE [Suspect]
     Dosage: 100 MILLIGRAM/SQ. METER
     Route: 065
  3. IDARUBICIN HCL [Suspect]
     Dosage: 12 MILLIGRAM/SQ. METER
     Route: 065

REACTIONS (9)
  - DIARRHOEA [None]
  - RASH [None]
  - NEUTROPENIA [None]
  - PYREXIA [None]
  - HAEMORRHAGE [None]
  - PAIN [None]
  - THROMBOCYTOPENIA [None]
  - FATIGUE [None]
  - NAUSEA [None]
